FAERS Safety Report 5107792-7 (Version None)
Quarter: 2006Q3

REPORT INFORMATION
  Report Type: 
  Country: None (occurrence: None)
  Receive Date: 20060919
  Receipt Date: 20060905
  Transmission Date: 20061208
  Serious: Yes (Death)
  Sender: FDA-Public Use
  Company Number: US-JNJFOC-20060902620

PATIENT
  Age: 35 Year
  Sex: Female

DRUGS (4)
  1. ACETAMINOPHEN/DIPHENHYDRAMINE [Suspect]
     Indication: SUICIDE ATTEMPT
     Dosage: UNKNOWN
     Route: 048
  2. INSULIN [Suspect]
     Indication: SUICIDE ATTEMPT
     Dosage: UNKNOWN
     Route: 065
  3. CLONAZEPAM [Suspect]
     Indication: SUICIDE ATTEMPT
     Dosage: UNKNOWN
     Route: 048
  4. MORPHINE [Suspect]
     Indication: SUICIDE ATTEMPT
     Dosage: UNKNOWN
     Route: 048

REACTIONS (7)
  - BRAIN OEDEMA [None]
  - COMPLETED SUICIDE [None]
  - HYPOTENSION [None]
  - LOSS OF CONSCIOUSNESS [None]
  - MULTIPLE DRUG OVERDOSE INTENTIONAL [None]
  - RESPIRATORY ARREST [None]
  - RESPIRATORY FAILURE [None]
